FAERS Safety Report 11863190 (Version 1)
Quarter: 2015Q4

REPORT INFORMATION
  Report Type: Spontaneous
  Country: US (occurrence: US)
  Receive Date: 20151223
  Receipt Date: 20151223
  Transmission Date: 20160305
  Serious: No
  Sender: FDA-Public Use
  Company Number: US-BAYER-2015-490137

PATIENT
  Age: 71 Year
  Sex: Male
  Weight: 87.98 kg

DRUGS (2)
  1. VICODIN [Concomitant]
     Active Substance: ACETAMINOPHEN\HYDROCODONE BITARTRATE
  2. MIRALAX [Suspect]
     Active Substance: POLYETHYLENE GLYCOL 3350

REACTIONS (4)
  - Dry mouth [None]
  - Dysphonia [None]
  - Cough [None]
  - Hypersensitivity [None]
